FAERS Safety Report 23487860 (Version 1)
Quarter: 2024Q1

REPORT INFORMATION
  Report Type: Spontaneous
  Country: US (occurrence: None)
  Receive Date: 20240205
  Receipt Date: 20240205
  Transmission Date: 20240410
  Serious: Yes (Hospitalization)
  Sender: FDA-Public Use
  Company Number: None

PATIENT
  Age: 69 Year
  Sex: Male
  Weight: 121.5 kg

DRUGS (1)
  1. REPATHA [Suspect]
     Active Substance: EVOLOCUMAB
     Indication: Blood cholesterol abnormal
     Dates: start: 20210210, end: 20230310

REACTIONS (3)
  - Hypersensitivity [None]
  - Therapy cessation [None]
  - Rhinorrhoea [None]

NARRATIVE: CASE EVENT DATE: 20230310
